FAERS Safety Report 8379010-8 (Version None)
Quarter: 2012Q2

REPORT INFORMATION
  Report Type: 
  Country: None (occurrence: None)
  Receive Date: 20120523
  Receipt Date: 20120517
  Transmission Date: 20120825
  Serious: No
  Sender: FDA-Public Use
  Company Number: US-TEVA-302123USA

PATIENT
  Sex: Female
  Weight: 78.088 kg

DRUGS (8)
  1. COPAXONE [Suspect]
     Indication: MULTIPLE SCLEROSIS
     Dosage: 20 MILLIGRAM;
     Route: 058
  2. ALENDRONATE SODIUM [Concomitant]
  3. METHYLPREDNISOLONE [Concomitant]
  4. SERETIDE                           /01420901/ [Concomitant]
  5. BUPROPION HCL [Concomitant]
  6. ZOLPIDEM TARTRATE [Concomitant]
  7. ESTROGEN NOS [Concomitant]
  8. ALBUTEROL [Concomitant]

REACTIONS (5)
  - ERYTHEMA [None]
  - SKIN IRRITATION [None]
  - INJECTION SITE REACTION [None]
  - URTICARIA [None]
  - PAIN [None]
